FAERS Safety Report 6198189-X (Version None)
Quarter: 2009Q2

REPORT INFORMATION
  Report Type: 
  Country: None (occurrence: None)
  Receive Date: 20090521
  Receipt Date: 20090514
  Transmission Date: 20091009
  Serious: Yes (Hospitalization)
  Sender: FDA-Public Use
  Company Number: GB-MERCK-0905GBR00048

PATIENT
  Sex: Male
  Weight: 77 kg

DRUGS (7)
  1. ZOCOR [Suspect]
  2. ASPIRIN [Concomitant]
     Route: 065
  3. FLUOXETINE [Concomitant]
     Route: 065
  4. LISINOPRIL [Concomitant]
     Route: 065
  5. OMEPRAZOLE [Concomitant]
     Route: 065
  6. THIAMINE [Concomitant]
     Route: 065
  7. ZOPICLONE [Concomitant]
     Route: 065

REACTIONS (2)
  - DYSPHAGIA [None]
  - SWOLLEN TONGUE [None]
